FAERS Safety Report 4658844-7 (Version None)
Quarter: 2005Q2

REPORT INFORMATION
  Report Type: 
  Country: None (occurrence: None)
  Receive Date: 20050511
  Receipt Date: 20050503
  Transmission Date: 20051028
  Serious: Yes (Hospitalization)
  Sender: FDA-Public Use
  Company Number: ES-MERCK-0505ESP00005

PATIENT
  Age: 79 Year
  Sex: Female

DRUGS (4)
  1. VIOXX [Suspect]
     Indication: BACK PAIN
     Route: 048
  2. SPIRONOLACTONE [Suspect]
     Indication: HYPERTENSION
     Route: 065
  3. STATIN (UNSPECIFIED) [Concomitant]
     Indication: HYPERCHOLESTEROLAEMIA
     Route: 065
  4. IRON (UNSPECIFIED) [Concomitant]
     Indication: IRON DEFICIENCY ANAEMIA
     Route: 048

REACTIONS (15)
  - ANOREXIA [None]
  - ARTERIAL DISORDER [None]
  - DEHYDRATION [None]
  - DRUG INTERACTION [None]
  - FATIGUE [None]
  - GENERAL PHYSICAL HEALTH DETERIORATION [None]
  - HAEMOGLOBIN DECREASED [None]
  - PALLOR [None]
  - PYREXIA [None]
  - RED BLOOD CELL SEDIMENTATION RATE INCREASED [None]
  - RENAL ARTERY STENOSIS [None]
  - RENAL FAILURE [None]
  - RENAL INTERSTITIAL FIBROSIS [None]
  - RENAL TUBULAR ATROPHY [None]
  - TUBULOINTERSTITIAL NEPHRITIS [None]
